FAERS Safety Report 4277621-2 (Version None)
Quarter: 2004Q1

REPORT INFORMATION
  Report Type: 
  Country: None (occurrence: None)
  Receive Date: 20040121
  Receipt Date: 20040109
  Transmission Date: 20041129
  Serious: Yes (Hospitalization)
  Sender: FDA-Public Use
  Company Number: ENZ-ABE-157

PATIENT
  Age: 28 Year
  Sex: Male
  Weight: 92.9 kg

DRUGS (8)
  1. ABELCET [Suspect]
     Indication: FUNGAL INFECTION
     Dosage: 1 MG/KG, DAILY, IV
     Route: 042
     Dates: start: 20031103, end: 20031104
  2. ABELCET [Suspect]
     Indication: PROPHYLAXIS
     Dosage: 1 MG/KG, DAILY, IV
     Route: 042
     Dates: start: 20031103, end: 20031104
  3. ABELCET (AMPHOTERICIN LIPID COMPLEX INJ) [Suspect]
     Indication: FUNGAL INFECTION
     Dosage: 2.5 MG DAILY IV
     Route: 042
     Dates: start: 20031105, end: 20031110
  4. ABELCET (AMPHOTERICIN LIPID COMPLEX INJ) [Suspect]
     Indication: PROPHYLAXIS
     Dosage: 2.5 MG DAILY IV
     Route: 042
     Dates: start: 20031105, end: 20031110
  5. ABELCET [Suspect]
     Indication: FUNGAL INFECTION
     Dosage: 5.0 MG/DAILY IV
     Route: 042
     Dates: start: 20031113, end: 20031123
  6. ABELCET [Suspect]
     Indication: PROPHYLAXIS
     Dosage: 5.0 MG/DAILY IV
     Route: 042
     Dates: start: 20031113, end: 20031123
  7. ABELCET [Suspect]
     Indication: FUNGAL INFECTION
     Dates: start: 20031203
  8. ABELCET [Suspect]
     Indication: PROPHYLAXIS
     Dates: start: 20031203

REACTIONS (5)
  - BILIRUBIN CONJUGATED INCREASED [None]
  - BLOOD ALBUMIN DECREASED [None]
  - BLOOD BILIRUBIN INCREASED [None]
  - BLOOD CREATININE INCREASED [None]
  - PROTEIN TOTAL DECREASED [None]
